FAERS Safety Report 6541882-7 (Version None)
Quarter: 2010Q1

REPORT INFORMATION
  Report Type: 
  Country: None (occurrence: None)
  Receive Date: 20100119
  Receipt Date: 20100107
  Transmission Date: 20100710
  Serious: Yes (Other)
  Sender: FDA-Public Use
  Company Number: US-PFIZER INC-2010002791

PATIENT
  Sex: Female

DRUGS (2)
  1. TIKOSYN [Suspect]
  2. SOTALOL [Suspect]

REACTIONS (5)
  - ABDOMINAL DISTENSION [None]
  - HEART RATE DECREASED [None]
  - HEART RATE INCREASED [None]
  - SINUS RHYTHM [None]
  - VENTRICULAR DYSFUNCTION [None]
